FAERS Safety Report 6198011-1 (Version None)
Quarter: 2009Q2

REPORT INFORMATION
  Report Type: 
  Country: None (occurrence: None)
  Receive Date: 20090521
  Receipt Date: 20090512
  Transmission Date: 20091009
  Serious: No
  Sender: FDA-Public Use
  Company Number: LB-ELI_LILLY_AND_COMPANY-LB200904001294

PATIENT
  Age: 54 Year
  Sex: Male

DRUGS (1)
  1. TADALAFIL [Suspect]
     Indication: ERECTILE DYSFUNCTION
     Dosage: 20 MG, UNKNOWN
     Route: 048

REACTIONS (1)
  - RHINITIS [None]
